FAERS Safety Report 6240479-6 (Version None)
Quarter: 2009Q2

REPORT INFORMATION
  Report Type: 
  Country: None (occurrence: None)
  Receive Date: 20090623
  Receipt Date: 20090313
  Transmission Date: 20091009
  Serious: No
  Sender: FDA-Public Use
  Company Number: US-ASTRAZENECA-2009UW06746

PATIENT
  Age: 79 Year
  Sex: Female

DRUGS (2)
  1. PULMICORT FLEXHALER [Suspect]
     Dosage: 180 UG
     Route: 055
  2. OMEPRAZOLE [Concomitant]

REACTIONS (2)
  - TOOTH EROSION [None]
  - TOOTH FRACTURE [None]
